FAERS Safety Report 7155339-6 (Version None)
Quarter: 2010Q4

REPORT INFORMATION
  Report Type: 
  Country: None (occurrence: None)
  Receive Date: 20101214
  Receipt Date: 20101206
  Transmission Date: 20110411
  Serious: Yes (Hospitalization)
  Sender: FDA-Public Use
  Company Number: 167026

PATIENT
  Age: 61 Year
  Sex: Female
  Weight: 48 kg

DRUGS (3)
  1. AVONEX [Suspect]
     Indication: MULTIPLE SCLEROSIS
     Route: 030
     Dates: start: 20000110, end: 20031001
  2. AVONEX [Suspect]
     Route: 030
     Dates: start: 20031001
  3. HORMONE REPLACEMENT (NOS) [Concomitant]

REACTIONS (10)
  - ANXIETY [None]
  - CONTUSION [None]
  - DEHYDRATION [None]
  - FALL [None]
  - INFLUENZA LIKE ILLNESS [None]
  - MULTIPLE SCLEROSIS [None]
  - OSTEOPENIA [None]
  - PARAESTHESIA [None]
  - VERTIGO POSITIONAL [None]
  - WEIGHT INCREASED [None]
